FAERS Safety Report 7510194-7 (Version None)
Quarter: 2011Q2

REPORT INFORMATION
  Report Type: 
  Country: None (occurrence: None)
  Receive Date: 20110527
  Receipt Date: 20110505
  Transmission Date: 20111010
  Serious: Yes (Other)
  Sender: FDA-Public Use
  Company Number: US-UCBSA-021220

PATIENT
  Sex: Male

DRUGS (2)
  1. CIMZIA [Suspect]
     Route: 058
  2. CIMZIA [Suspect]
     Indication: CROHN'S DISEASE
     Dosage: ON HOLD
     Route: 058
     Dates: start: 20090126

REACTIONS (4)
  - SURGERY [None]
  - THERAPEUTIC PROCEDURE [None]
  - INCISION SITE INFECTION [None]
  - WOUND [None]
